FAERS Safety Report 8111940-4 (Version None)
Quarter: 2012Q1

REPORT INFORMATION
  Report Type: 
  Country: None (occurrence: None)
  Receive Date: 20120203
  Receipt Date: 20110620
  Transmission Date: 20120608
  Serious: Yes (Other)
  Sender: FDA-Public Use
  Company Number: US-GLAXOSMITHKLINE-A0933878A

PATIENT

DRUGS (3)
  1. CELEBREX [Concomitant]
  2. ARIXTRA [Suspect]
     Indication: THROMBOSIS PROPHYLAXIS
     Dosage: 2.5MG TWICE PER DAY
     Route: 058
  3. TORADOL [Concomitant]

REACTIONS (2)
  - INCISION SITE HAEMORRHAGE [None]
  - HAEMARTHROSIS [None]
